FAERS Safety Report 5264041-7 (Version None)
Quarter: 2007Q1

REPORT INFORMATION
  Report Type: 
  Country: None (occurrence: None)
  Receive Date: 20070313
  Receipt Date: 20070301
  Transmission Date: 20070707
  Serious: Yes (Other)
  Sender: FDA-Public Use
  Company Number: GB-PFIZER INC-2007017335

PATIENT
  Sex: Male

DRUGS (7)
  1. VIAGRA [Suspect]
     Route: 048
  2. IMDUR [Concomitant]
     Dates: start: 20051101, end: 20060501
  3. PLAVIX [Concomitant]
  4. CO-PROXAMOL [Concomitant]
  5. DOXAZOSIN MESYLATE [Concomitant]
  6. TAMSULOSIN HCL [Concomitant]
  7. CORDARONE [Concomitant]

REACTIONS (2)
  - ATRIAL FIBRILLATION [None]
  - STRESS [None]
